FAERS Safety Report 7467440-8 (Version None)
Quarter: 2011Q2

REPORT INFORMATION
  Report Type: 
  Country: None (occurrence: None)
  Receive Date: 20110509
  Receipt Date: 20110111
  Transmission Date: 20111010
  Serious: Yes (Hospitalization)
  Sender: FDA-Public Use
  Company Number: US-ALEXION-A201001566

PATIENT
  Sex: Male

DRUGS (7)
  1. SENOKOT [Concomitant]
     Dosage: UNK
     Route: 048
  2. SOLIRIS [Suspect]
     Indication: PAROXYSMAL NOCTURNAL HAEMOGLOBINURIA
     Dosage: 600 MG, QW
     Route: 042
     Dates: start: 20081007, end: 20081021
  3. SOLIRIS [Suspect]
     Dosage: 900 MG, Q2W
     Route: 042
     Dates: start: 20081028
  4. IRON [Concomitant]
     Dosage: UNK
     Route: 048
  5. FOLIC ACID [Concomitant]
     Dosage: UNK
     Route: 048
  6. WARFARIN [Concomitant]
     Dosage: UNK
     Route: 048
  7. COLACE [Concomitant]
     Dosage: UNK
     Route: 048

REACTIONS (3)
  - INGUINAL HERNIA [None]
  - BLOOD LACTATE DEHYDROGENASE INCREASED [None]
  - URINE COLOUR ABNORMAL [None]
